FAERS Safety Report 8469569-4 (Version None)
Quarter: 2012Q2

REPORT INFORMATION
  Report Type: 
  Country: None (occurrence: None)
  Receive Date: 20120323
  Receipt Date: 20110815
  Transmission Date: 20120825
  Serious: Yes (Other)
  Sender: FDA-Public Use
  Company Number: 163-21880-11081924

PATIENT
  Age: 91 Year
  Sex: Male
  Weight: 70.6 kg

DRUGS (2)
  1. REVLIMID [Suspect]
     Indication: MULTIPLE MYELOMA
     Dosage: 10 MG, DAILY FOR 21 DAYS ON THEN 7 DAYS OFF, PO
     Route: 048
     Dates: start: 20110412
  2. REVLIMID [Suspect]
     Indication: MULTIPLE MYELOMA
     Dosage: 10 MG, DAILY FOR 21 DAYS ON THEN 7 DAYS OFF, PO
     Route: 048
     Dates: start: 20101216, end: 20110317

REACTIONS (1)
  - INFECTION [None]
